FAERS Safety Report 7323306-5 (Version None)
Quarter: 2011Q1

REPORT INFORMATION
  Report Type: 
  Country: None (occurrence: None)
  Receive Date: 20110201
  Receipt Date: 20110204
  Transmission Date: 20110831
  Serious: Yes (Hospitalization, Disabling)
  Sender: FDA-Public Use
  Company Number: 2010000753

PATIENT
  Age: 71 Year
  Sex: Male

DRUGS (2)
  1. ERLOTINIB (ERLOTINIB) (TABLET) (ERLOTINIB) [Suspect]
     Indication: LUNG SQUAMOUS CELL CARCINOMA STAGE UNSPECIFIED
     Dosage: (150 MG,1 X PER 1 DAY),ORAL
     Route: 048
     Dates: start: 20090529, end: 20090715
  2. GAMOFA [Concomitant]

REACTIONS (3)
  - HYPOPROTEINAEMIA [None]
  - MEDIASTINITIS [None]
  - PNEUMOMEDIASTINUM [None]
